FAERS Safety Report 10421238 (Version 1)
Quarter: 2014Q3

REPORT INFORMATION
  Report Type: Spontaneous
  Country: US (occurrence: US)
  Receive Date: 20140830
  Receipt Date: 20140830
  Transmission Date: 20150326
  Serious: No
  Sender: FDA-Public Use
  Company Number: US-009507513-1408USA012459

PATIENT
  Sex: Female

DRUGS (1)
  1. FOSAMAX [Suspect]
     Active Substance: ALENDRONATE SODIUM
     Indication: OSTEOPOROSIS
     Dosage: STARTING DOSE, QW
     Route: 048
     Dates: start: 2004, end: 2004

REACTIONS (1)
  - Abdominal discomfort [Recovered/Resolved with Sequelae]

NARRATIVE: CASE EVENT DATE: 2004
